FAERS Safety Report 6675001-3 (Version None)
Quarter: 2010Q2

REPORT INFORMATION
  Report Type: 
  Country: None (occurrence: None)
  Receive Date: 20100409
  Receipt Date: 20100401
  Transmission Date: 20101027
  Serious: Yes (Hospitalization)
  Sender: FDA-Public Use
  Company Number: FR-ABBOTT-10P-056-0636149-00

PATIENT
  Sex: Male

DRUGS (1)
  1. HUMIRA [Suspect]
     Indication: RHEUMATOID ARTHRITIS
     Route: 058
     Dates: start: 20090807, end: 20100312

REACTIONS (6)
  - DYSPNOEA [None]
  - ERYSIPELAS [None]
  - ERYTHEMA [None]
  - INFLAMMATION [None]
  - PYREXIA [None]
  - TACHYPNOEA [None]
